FAERS Safety Report 8997483 (Version 1)
Quarter: 2013Q1

REPORT INFORMATION
  Report Type: Spontaneous
  Country: US (occurrence: US)
  Receive Date: 20130104
  Receipt Date: 20130104
  Transmission Date: 20140127
  Serious: No
  Sender: FDA-Public Use
  Company Number: US-COVIDIEN/TYCO HEALTHCARE/MALLINCKRODT-T201201388

PATIENT
  Sex: Male

DRUGS (3)
  1. ANAFRANIL CAPSULES [Suspect]
     Indication: OBSESSIVE-COMPULSIVE DISORDER
     Dosage: 50 MG,QHS
     Dates: start: 201112
  2. ATIVAN [Concomitant]
     Indication: ANXIETY
     Dosage: 2-4 MG QD PRN
     Route: 048
  3. HALDOL                             /00027401/ [Concomitant]
     Indication: TOURETTE^S DISORDER
     Dosage: 1.5 MG, QHS
     Route: 048

REACTIONS (2)
  - Alcoholism [Not Recovered/Not Resolved]
  - Alcohol use [Unknown]
